FAERS Safety Report 4489184-7 (Version None)
Quarter: 2004Q4

REPORT INFORMATION
  Report Type: 
  Country: None (occurrence: None)
  Receive Date: 20041029
  Receipt Date: 20041018
  Transmission Date: 20050328
  Serious: Yes (Death)
  Sender: FDA-Public Use
  Company Number: US-JNJFOC-20040809354

PATIENT
  Sex: Male
  Weight: 82.1 kg

DRUGS (6)
  1. DURAGESIC [Suspect]
     Route: 062
     Dates: end: 20040703
  2. MS CONTIN [Suspect]
     Indication: DRUG USE FOR UNKNOWN INDICATION
     Route: 049
  3. METHADONE HCL [Concomitant]
     Indication: DRUG USE FOR UNKNOWN INDICATION
     Route: 049
  4. SOMA [Concomitant]
     Route: 049
  5. ELAVIL [Concomitant]
     Dosage: AT BEDTIME
     Route: 049
  6. CLARITIN [Concomitant]
     Route: 049

REACTIONS (1)
  - MULTIPLE DRUG OVERDOSE [None]
